FAERS Safety Report 9423628 (Version 2)
Quarter: 2013Q3

REPORT INFORMATION
  Report Type: Spontaneous
  Country: US (occurrence: US)
  Receive Date: 20130726
  Receipt Date: 20130809
  Transmission Date: 20140515
  Serious: Yes (Death)
  Sender: FDA-Public Use
  Company Number: US-GILEAD-2013-0080157

PATIENT
  Age: 66 Year
  Sex: Female

DRUGS (4)
  1. LETAIRIS [Suspect]
     Indication: PULMONARY HYPERTENSION
     Dosage: 10 MG, QD
     Route: 048
     Dates: start: 201001
  2. LETAIRIS [Suspect]
     Indication: HYPERTENSIVE HEART DISEASE
  3. LETAIRIS [Suspect]
     Indication: NEPHROPATHY
  4. LETAIRIS [Suspect]
     Indication: PULMONARY ARTERIAL WEDGE PRESSURE

REACTIONS (1)
  - Death [Fatal]
